FAERS Safety Report 5980319-3 (Version None)
Quarter: 2008Q4

REPORT INFORMATION
  Report Type: 
  Country: None (occurrence: None)
  Receive Date: 20081202
  Receipt Date: 20081202
  Transmission Date: 20090506
  Serious: Yes (Other)
  Sender: FDA-Public Use
  Company Number: None

PATIENT
  Age: 80 Year
  Sex: Female
  Weight: 51.2565 kg

DRUGS (1)
  1. ISOSORBIDE MONONITRATE [Suspect]
     Dosage: ONE PER DAY PO
     Route: 048
     Dates: start: 20080401, end: 20080801

REACTIONS (2)
  - PRODUCT QUALITY ISSUE [None]
  - SYNCOPE [None]
